FAERS Safety Report 5085769-8 (Version None)
Quarter: 2006Q3

REPORT INFORMATION
  Report Type: 
  Country: None (occurrence: None)
  Receive Date: 20060817
  Receipt Date: 20060803
  Transmission Date: 20061208
  Serious: Yes (Other)
  Sender: FDA-Public Use
  Company Number: 2006096204

PATIENT
  Sex: Female

DRUGS (2)
  1. CELEBREX [Suspect]
     Indication: OSTEOARTHRITIS
     Dosage: 200 MG (200 MG, 1 IN 1 D);
  2. NIACIN [Suspect]
     Indication: BLOOD CHOLESTEROL INCREASED
     Dates: end: 20060101

REACTIONS (7)
  - BLOOD CALCIUM INCREASED [None]
  - CARDIAC FIBRILLATION [None]
  - DYSARTHRIA [None]
  - DYSPHAGIA [None]
  - MOTOR NEURONE DISEASE [None]
  - PARATHYROID DISORDER [None]
  - WEIGHT DECREASED [None]
